FAERS Safety Report 11247923 (Version 1)
Quarter: 2015Q3

REPORT INFORMATION
  Report Type: Spontaneous
  Country: US (occurrence: None)
  Receive Date: 20150707
  Receipt Date: 20150707
  Transmission Date: 20151125
  Serious: Yes (Hospitalization)
  Sender: FDA-Public Use
  Company Number: None

PATIENT
  Sex: Female
  Weight: 74.3 kg

DRUGS (9)
  1. MACROBID [Concomitant]
     Active Substance: NITROFURANTOIN\NITROFURANTOIN MONOHYDRATE
  2. CALCIUM 600+D [Concomitant]
     Active Substance: CALCIUM\VITAMIN D
  3. LISINOPRIL. [Concomitant]
     Active Substance: LISINOPRIL
  4. NEURONTIN [Concomitant]
     Active Substance: GABAPENTIN
  5. AZO-CRANBERRY ORAL TABLET [Concomitant]
  6. LORATADINE. [Concomitant]
     Active Substance: LORATADINE
  7. HARVONI [Suspect]
     Active Substance: LEDIPASVIR\SOFOSBUVIR
     Indication: HEPATITIS C
     Route: 048
     Dates: start: 20150219
  8. MUCINEX [Concomitant]
     Active Substance: GUAIFENESIN
  9. CELEBREX [Concomitant]
     Active Substance: CELECOXIB

REACTIONS (8)
  - Dysuria [None]
  - Respiratory rate increased [None]
  - Escherichia infection [None]
  - Heart rate increased [None]
  - Pyelonephritis acute [None]
  - Pyrexia [None]
  - Blood pressure increased [None]
  - Oxygen saturation decreased [None]

NARRATIVE: CASE EVENT DATE: 20150506
